FAERS Safety Report 19190174 (Version 2)
Quarter: 2023Q2

REPORT INFORMATION
  Report Type: Report from Study
  Country: US (occurrence: US)
  Receive Date: 20210428
  Receipt Date: 20230614
  Transmission Date: 20230721
  Serious: Yes (Hospitalization)
  Sender: FDA-Public Use
  Company Number: US-REGENERON PHARMACEUTICALS, INC.-2021-24499

PATIENT
  Age: 18 Year
  Sex: Male

DRUGS (20)
  1. CEMIPLIMAB [Suspect]
     Active Substance: CEMIPLIMAB
     Indication: Malignant glioma
     Dosage: 3 MG/KG, Q2W
     Route: 042
     Dates: start: 20210126, end: 20210209
  2. RADIATION THERAPY [Concomitant]
     Active Substance: RADIATION THERAPY
     Indication: Malignant glioma
     Dosage: 3.5 CGY
     Dates: start: 20210128
  3. LEVETIRACETAM [Concomitant]
     Active Substance: LEVETIRACETAM
     Indication: Seizure
     Dosage: 750 MG, BID
     Route: 048
     Dates: start: 20201217, end: 20210215
  4. ACETAMINOPHEN [Concomitant]
     Active Substance: ACETAMINOPHEN
     Indication: Headache
     Dosage: 500 MG, Q6H
     Route: 048
     Dates: start: 20210125, end: 20210213
  5. CEFAZOLIN [Concomitant]
     Active Substance: CEFAZOLIN
     Indication: Prophylaxis
     Dosage: 1551 MG, OTO
     Route: 042
     Dates: start: 20210125, end: 20210125
  6. EPINEPHRINE\LIDOCAINE [Concomitant]
     Active Substance: EPINEPHRINE\LIDOCAINE
     Indication: Prophylaxis
     Dosage: 10 ML, OTO
     Route: 058
     Dates: start: 20210125, end: 20210125
  7. EPINEPHRINE\LIDOCAINE [Concomitant]
     Active Substance: EPINEPHRINE\LIDOCAINE
     Dosage: 0.5 ML, OTO
     Route: 058
     Dates: start: 20210126, end: 20210126
  8. EPINEPHRINE\LIDOCAINE [Concomitant]
     Active Substance: EPINEPHRINE\LIDOCAINE
     Dosage: 0.5 ML, OTO
     Route: 058
     Dates: start: 20210209, end: 20210214
  9. FENTANYL [Concomitant]
     Active Substance: FENTANYL
     Indication: Anaesthesia
     Dosage: 0.1 MG, OTO
     Route: 042
     Dates: start: 20210125, end: 20210125
  10. LIDOCAINE [Concomitant]
     Active Substance: LIDOCAINE
     Indication: Anaesthesia
     Dosage: 20 MG, OTO
     Route: 042
     Dates: start: 20210125, end: 20210125
  11. PROPOFOL [Concomitant]
     Active Substance: PROPOFOL
     Indication: Anaesthesia
     Dosage: 300 MG, QD
     Route: 042
     Dates: start: 20210125, end: 20210125
  12. ONDANSETRON [Concomitant]
     Active Substance: ONDANSETRON
     Indication: Prophylaxis
     Dosage: 8 MG, TID
     Route: 048
     Dates: start: 20210125, end: 20210301
  13. ONDANSETRON [Concomitant]
     Active Substance: ONDANSETRON
     Indication: Nausea
     Dosage: 8 MG, OTO
     Route: 042
     Dates: start: 20210126, end: 20210126
  14. ONDANSETRON [Concomitant]
     Active Substance: ONDANSETRON
     Dosage: 8 MG, OTO
     Route: 042
     Dates: start: 20210209, end: 20210209
  15. TRILEPTAL [Concomitant]
     Active Substance: OXCARBAZEPINE
     Indication: Seizure
     Dosage: 300 MG, BID FOR 3 DAYS, 450 MG BID FOR DAYS, THEN CONTINUE AT 600 MG BID
     Route: 048
     Dates: start: 20210204, end: 20210206
  16. TRILEPTAL [Concomitant]
     Active Substance: OXCARBAZEPINE
     Dosage: 300 MG, BID FOR 3 DAYS, 450 MG BID FOR DAYS, THEN CONTINUE AT 600 MG BID
     Route: 048
     Dates: start: 20210207, end: 20210209
  17. TRILEPTAL [Concomitant]
     Active Substance: OXCARBAZEPINE
     Dosage: 600 MG, BID
     Route: 048
     Dates: start: 20210210, end: 20210214
  18. MIDAZOLAM [Concomitant]
     Active Substance: MIDAZOLAM
     Indication: Seizure
     Dosage: 5 MG, AS NECESSARY
     Route: 045
     Dates: start: 20210204
  19. DIPHENHYDRAMINE [Concomitant]
     Active Substance: DIPHENHYDRAMINE
     Indication: Anaphylactic reaction
     Dosage: 50 MG, AS NECESSARY
     Route: 042
     Dates: start: 20210209, end: 20210215
  20. LIDOCAINE [Concomitant]
     Active Substance: LIDOCAINE
     Indication: Prophylaxis
     Dosage: 1 APPLICATION, AS NECESSARY
     Route: 061
     Dates: start: 20210118

REACTIONS (1)
  - Drug reaction with eosinophilia and systemic symptoms [Recovered/Resolved]

NARRATIVE: CASE EVENT DATE: 20210214
